FAERS Safety Report 6537462-X (Version None)
Quarter: 2010Q1

REPORT INFORMATION
  Report Type: 
  Country: None (occurrence: None)
  Receive Date: 20100107
  Receipt Date: 20100105
  Transmission Date: 20100710
  Serious: Yes (Other)
  Sender: FDA-Public Use
  Company Number: 2010SP000554

PATIENT

DRUGS (2)
  1. REBETOL [Suspect]
     Indication: HEPATITIS C
     Dosage: ; QD; PO
     Route: 048
     Dates: start: 20090501, end: 20090801
  2. REBETOL [Suspect]
     Indication: HEPATITIS C
     Dosage: ; QD; PO
     Route: 048
     Dates: start: 20091211

REACTIONS (2)
  - EYE HAEMORRHAGE [None]
  - FACIAL PALSY [None]
